FAERS Safety Report 6700569-8 (Version None)
Quarter: 2010Q2

REPORT INFORMATION
  Report Type: 
  Country: None (occurrence: None)
  Receive Date: 20100428
  Receipt Date: 20100423
  Transmission Date: 20101027
  Serious: Yes (Hospitalization)
  Sender: FDA-Public Use
  Company Number: B0649571A

PATIENT
  Sex: Male
  Weight: 90 kg

DRUGS (2)
  1. MALARONE [Suspect]
     Indication: MALARIA PROPHYLAXIS
     Route: 048
     Dates: start: 20080113, end: 20080129
  2. OFLOXACIN [Suspect]
     Indication: PROPHYLAXIS
     Route: 048

REACTIONS (1)
  - DRUG INTERACTION [None]
